FAERS Safety Report 5843233-X (Version None)
Quarter: 2008Q3

REPORT INFORMATION
  Report Type: 
  Country: None (occurrence: None)
  Receive Date: 20080813
  Receipt Date: 20080805
  Transmission Date: 20090109
  Serious: Yes (Other)
  Sender: FDA-Public Use
  Company Number: PHHY2008FR17227

PATIENT
  Age: 92 Year
  Sex: Female

DRUGS (8)
  1. TEGRETOL [Suspect]
     Dosage: 200 MG, DAILY
  2. TEGRETOL [Suspect]
     Dosage: 400 MG, DAILY
  3. LUDIOMIL 75 [Suspect]
     Dosage: 75 MG DAILY
  4. LEVOTHYROX [Concomitant]
  5. TERCIAN [Concomitant]
  6. ASPIRIN [Concomitant]
  7. NOCTRAN [Concomitant]
  8. VALIUM [Concomitant]

REACTIONS (7)
  - AGITATION [None]
  - CONFUSIONAL STATE [None]
  - DRUG DISPENSING ERROR [None]
  - FALL [None]
  - JOINT SWELLING [None]
  - PHYSICAL DISABILITY [None]
  - RIB FRACTURE [None]
